FAERS Safety Report 5350008-7 (Version None)
Quarter: 2007Q2

REPORT INFORMATION
  Report Type: 
  Country: None (occurrence: None)
  Receive Date: 20070607
  Receipt Date: 20070531
  Transmission Date: 20071010
  Serious: Yes (Death, Hospitalization)
  Sender: FDA-Public Use
  Company Number: DK-PFIZER INC-2007045377

PATIENT
  Sex: Male

DRUGS (3)
  1. METHYLPREDNISOLONE SODIUM SUCCINATE [Suspect]
     Route: 050
     Dates: start: 20060522, end: 20060526
  2. ETANERCEPT [Concomitant]
  3. METHOTREXATE SODIUM [Concomitant]
     Route: 050

REACTIONS (1)
  - GASTRIC ULCER [None]
